FAERS Safety Report 7269739-7 (Version None)
Quarter: 2011Q1

REPORT INFORMATION
  Report Type: 
  Country: None (occurrence: None)
  Receive Date: 20110124
  Receipt Date: 20110112
  Transmission Date: 20110831
  Serious: Yes (Death, Life-Threatening, Hospitalization, Other)
  Sender: FDA-Public Use
  Company Number: 2010JP003737

PATIENT
  Age: 34 Year
  Sex: Male
  Weight: 60 kg

DRUGS (23)
  1. NAUZELIN (DOMPERIDONE) [Concomitant]
  2. ZANTAC [Concomitant]
  3. ENTERONON R (BIFIDOBACTERIUM BIFIDUM, LACTOBACILLUS ACIDOPHILUS, LACTO [Concomitant]
  4. SODIUM POLYSTYRENE SULFONATE [Concomitant]
  5. PREDNISOLONE [Suspect]
     Indication: RENAL TRANSPLANT
     Dosage: 5 MG, BID, ORAL
     Route: 048
     Dates: start: 20030722, end: 20100102
  6. MINOCYCLINE HCL [Concomitant]
  7. FUNGUARD (MICAFUNGIN) [Concomitant]
  8. HEPARIN [Concomitant]
  9. NOVOLOG [Concomitant]
  10. AMBISOME [Concomitant]
  11. CELLCEPT [Suspect]
     Indication: RENAL TRANSPLANT
     Dosage: 500 MG, BID, ORAL
     Route: 048
     Dates: start: 20030722, end: 20091222
  12. ALLOPURINOL [Concomitant]
  13. OPEGUARD NEO (OXIGLUTATIONE) [Concomitant]
  14. VORICONAZOLE [Concomitant]
  15. MICARDIS [Concomitant]
  16. ALFAROL (ALFACALCIDOL) [Concomitant]
  17. GANCICLOVIR SODIUM [Concomitant]
  18. ADALAT [Concomitant]
  19. TANKARU TAIYO (CALCIUM CARBONATE) [Concomitant]
  20. MUCODYNE (CARBOCISTEINE) [Concomitant]
  21. PROGRAF [Suspect]
     Indication: RENAL TRANSPLANT
     Dosage: 0.5 MG, BID, ORAL
     Route: 048
     Dates: start: 20030722, end: 20091225
  22. ITRACONAZOLE [Concomitant]
  23. PURSENNID (SENNOSIDE A+B CALCIUM) [Concomitant]

REACTIONS (21)
  - MOVEMENT DISORDER [None]
  - DEPRESSED LEVEL OF CONSCIOUSNESS [None]
  - FUNGAL SEPSIS [None]
  - PULMONARY OEDEMA [None]
  - GENERAL PHYSICAL HEALTH DETERIORATION [None]
  - ASPERGILLUS TEST POSITIVE [None]
  - CYTOMEGALOVIRUS TEST POSITIVE [None]
  - LUNG INFECTION [None]
  - AORTIC VALVE INCOMPETENCE [None]
  - MENINGITIS [None]
  - NOCARDIOSIS [None]
  - CARDIAC FAILURE ACUTE [None]
  - CATHETER SITE HAEMORRHAGE [None]
  - BLOOD LACTATE DEHYDROGENASE INCREASED [None]
  - FUNGAL ENDOCARDITIS [None]
  - PNEUMOCYSTIS JIROVECI PNEUMONIA [None]
  - PULMONARY ALVEOLAR HAEMORRHAGE [None]
  - SCEDOSPORIUM INFECTION [None]
  - CARDIAC VALVE VEGETATION [None]
  - HEADACHE [None]
  - DISSEMINATED INTRAVASCULAR COAGULATION [None]
